FAERS Safety Report 4475304-7 (Version None)
Quarter: 2004Q4

REPORT INFORMATION
  Report Type: 
  Country: None (occurrence: None)
  Receive Date: 20041012
  Receipt Date: 20040928
  Transmission Date: 20050328
  Serious: No
  Sender: FDA-Public Use
  Company Number: 2001050808US

PATIENT
  Age: 11 Year
  Sex: Female

DRUGS (3)
  1. IDAMYCIN [Suspect]
     Indication: ACUTE MYELOID LEUKAEMIA
  2. CYTOSAR-U [Suspect]
  3. NEOSAR [Suspect]

REACTIONS (5)
  - ACUTE MYELOID LEUKAEMIA [None]
  - BONE MARROW TRANSPLANT [None]
  - BREAST MASS [None]
  - HYPERTROPHY BREAST [None]
  - LEUKAEMIA RECURRENT [None]
